FAERS Safety Report 6235291-8 (Version None)
Quarter: 2009Q2

REPORT INFORMATION
  Report Type: 
  Country: None (occurrence: None)
  Receive Date: 20090618
  Receipt Date: 20090609
  Transmission Date: 20091009
  Serious: Yes (Other)
  Sender: FDA-Public Use
  Company Number: JP-GENENTECH-282460

PATIENT

DRUGS (2)
  1. NUTROPIN [Suspect]
     Indication: GROWTH HORMONE DEFICIENCY
     Dosage: 0.5 IU/KG, 1/WEEK
  2. NUTROPIN [Suspect]
     Dosage: 0.175 MG/KG, 1/WEEK

REACTIONS (1)
  - IGA NEPHROPATHY [None]
